FAERS Safety Report 16298571 (Version 1)
Quarter: 2019Q2

REPORT INFORMATION
  Report Type: Spontaneous
  Country: FR (occurrence: FR)
  Receive Date: 20190510
  Receipt Date: 20190510
  Transmission Date: 20190711
  Serious: Yes (Hospitalization)
  Sender: FDA-Public Use
  Company Number: FR-TEVA-2019-FR-1046898

PATIENT
  Age: 63 Year
  Sex: Female
  Weight: 90 kg

DRUGS (3)
  1. IBUPROFENE [Suspect]
     Active Substance: IBUPROFEN
     Dosage: 2 DOSAGE FORMS
     Route: 048
     Dates: start: 20180608, end: 20180608
  2. PARACETAMOL [Suspect]
     Active Substance: ACETAMINOPHEN
     Dosage: 48 GRAM
     Route: 048
     Dates: start: 20180608, end: 20180608
  3. CODEINE [Suspect]
     Active Substance: CODEINE
     Route: 048
     Dates: start: 20180608, end: 20180608

REACTIONS (1)
  - Acute hepatic failure [Recovered/Resolved]

NARRATIVE: CASE EVENT DATE: 20180609
